FAERS Safety Report 5200313-X (Version None)
Quarter: 2007Q1

REPORT INFORMATION
  Report Type: 
  Country: None (occurrence: None)
  Receive Date: 20070105
  Receipt Date: 20061230
  Transmission Date: 20070707
  Serious: No
  Sender: FDA-Public Use
  Company Number: US-PFIZER INC-2006140995

PATIENT

DRUGS (2)
  1. DETROL LA [Suspect]
  2. ZYRTEC [Suspect]

REACTIONS (1)
  - NO ADVERSE EFFECT [None]
